FAERS Safety Report 9587055 (Version 1)
Quarter: 2013Q4

REPORT INFORMATION
  Report Type: Spontaneous
  Country: US (occurrence: US)
  Receive Date: 20131003
  Receipt Date: 20131003
  Transmission Date: 20140711
  Serious: Yes (Other)
  Sender: FDA-Public Use
  Company Number: US-TEVA-435586USA

PATIENT
  Age: 51 Year
  Sex: Female

DRUGS (3)
  1. PROVIGIL [Suspect]
     Indication: NARCOLEPSY
     Dosage: 400 MILLIGRAM DAILY;
  2. LUNESTA [Concomitant]
     Indication: INSOMNIA
  3. CLONIDINE [Concomitant]
     Indication: HEART RATE IRREGULAR
     Route: 048

REACTIONS (3)
  - Gastric bypass [Recovered/Resolved]
  - Drug ineffective [Unknown]
  - Drug dispensing error [Unknown]
